FAERS Safety Report 20155435 (Version 3)
Quarter: 2022Q2

REPORT INFORMATION
  Report Type: Spontaneous
  Country: US (occurrence: US)
  Receive Date: 20211207
  Receipt Date: 20220506
  Transmission Date: 20220721
  Serious: No
  Sender: FDA-Public Use
  Company Number: US-LUPIN PHARMACEUTICALS INC.-2021-23621

PATIENT
  Sex: Female

DRUGS (1)
  1. ALBUTEROL SULFATE [Suspect]
     Active Substance: ALBUTEROL SULFATE
     Indication: Asthma
     Dosage: UNK (AS NEEDED 2 PUFFS EVERY 4-6 HOURS FOR ASTHMA)
     Dates: start: 202108

REACTIONS (5)
  - Product substitution issue [Unknown]
  - Device delivery system issue [Unknown]
  - Device occlusion [Unknown]
  - Device malfunction [Unknown]
  - No adverse event [Unknown]
